FAERS Safety Report 16814398 (Version 1)
Quarter: 2019Q3

REPORT INFORMATION
  Report Type: Spontaneous
  Country: US (occurrence: US)
  Receive Date: 20190725
  Receipt Date: 20190725
  Transmission Date: 20191005
  Serious: No
  Sender: FDA-Public Use
  Company Number: None

PATIENT
  Age: 53 Year
  Sex: Male

DRUGS (4)
  1. OXYMETAZOLINE [Concomitant]
     Active Substance: OXYMETAZOLINE
  2. ZYTIGA [Suspect]
     Active Substance: ABIRATERONE ACETATE
     Indication: PROSTATE CANCER
     Route: 048
     Dates: start: 20190623
  3. CALCIUM+D [Concomitant]
     Active Substance: CALCIUM\VITAMIN D
  4. PROCHLORPERAZONE [Concomitant]

REACTIONS (3)
  - Fatigue [None]
  - Eye haemorrhage [None]
  - Asthenia [None]
